FAERS Safety Report 7652387-4 (Version None)
Quarter: 2011Q3

REPORT INFORMATION
  Report Type: 
  Country: None (occurrence: None)
  Receive Date: 20110728
  Receipt Date: 20110725
  Transmission Date: 20111222
  Serious: Yes (Hospitalization)
  Sender: FDA-Public Use
  Company Number: 1000011397

PATIENT
  Sex: Female

DRUGS (3)
  1. CHEMOTHERAPY (NOS) [Suspect]
  2. SAVELLA [Suspect]
  3. CYMBALTA [Suspect]

REACTIONS (1)
  - JAUNDICE [None]
